FAERS Safety Report 16340406 (Version 1)
Quarter: 2019Q2

REPORT INFORMATION
  Report Type: Spontaneous
  Country: JP (occurrence: JP)
  Receive Date: 20190522
  Receipt Date: 20190522
  Transmission Date: 20190711
  Serious: Yes (Other)
  Sender: FDA-Public Use
  Company Number: JP-BRISTOL-MYERS SQUIBB COMPANY-BMS-2019-048817

PATIENT

DRUGS (1)
  1. OPDIVO [Suspect]
     Active Substance: NIVOLUMAB
     Indication: PLEURAL MESOTHELIOMA MALIGNANT RECURRENT
     Dosage: UNK
     Route: 041

REACTIONS (4)
  - Product use in unapproved indication [Unknown]
  - Liver disorder [Unknown]
  - Diarrhoea [Unknown]
  - Rheumatoid arthritis [Unknown]
